FAERS Safety Report 19685461 (Version 1)
Quarter: 2021Q3

REPORT INFORMATION
  Report Type: Spontaneous
  Country: CA (occurrence: CA)
  Receive Date: 20210811
  Receipt Date: 20210811
  Transmission Date: 20211014
  Serious: Yes (Other)
  Sender: FDA-Public Use
  Company Number: CA-SCIEGENPHARMA-2021SCILIT00636

PATIENT
  Age: 19 Month
  Sex: Male

DRUGS (2)
  1. CLOBAZAM. [Interacting]
     Active Substance: CLOBAZAM
     Indication: EPILEPSY
     Route: 065
  2. LEVETIRACETAM. [Suspect]
     Active Substance: LEVETIRACETAM
     Indication: EPILEPSY
     Route: 065

REACTIONS (3)
  - Product use issue [None]
  - Drug ineffective [Recovered/Resolved]
  - Seizure [Recovered/Resolved]
